FAERS Safety Report 10261874 (Version 1)
Quarter: 2014Q2

REPORT INFORMATION
  Report Type: Spontaneous
  Country: US (occurrence: None)
  Receive Date: 20140624
  Receipt Date: 20140624
  Transmission Date: 20141212
  Serious: No
  Sender: FDA-Public Use
  Company Number: None

PATIENT
  Age: 57 Year
  Sex: Female

DRUGS (1)
  1. RAPAMUNE [Suspect]
     Indication: HEART TRANSPLANT
     Dosage: 1 MG (TOTAL 1.5 MG) DAILY PO
     Route: 048
     Dates: start: 20140212

REACTIONS (3)
  - Eye haemorrhage [None]
  - Nausea [None]
  - Pain [None]
